FAERS Safety Report 7028271-6 (Version None)
Quarter: 2010Q4

REPORT INFORMATION
  Report Type: 
  Country: None (occurrence: None)
  Receive Date: 20101005
  Receipt Date: 20100928
  Transmission Date: 20110411
  Serious: Yes (Life-Threatening, Hospitalization, Other)
  Sender: FDA-Public Use
  Company Number: CA-PFIZER INC-2010070073

PATIENT
  Age: 58 Year
  Sex: Male
  Weight: 74.83 kg

DRUGS (3)
  1. LIPITOR [Suspect]
     Indication: HYPERCHOLESTEROLAEMIA
     Dosage: 20 MG, ALTERNATE DAY
     Route: 048
     Dates: start: 20021101, end: 20030201
  2. LIPITOR [Suspect]
     Dosage: 10 MG, ALTERNATE DAY
     Route: 048
     Dates: start: 19990608, end: 20040121
  3. ACETYLSALICYLIC ACID [Concomitant]
     Dosage: 325 MG, ALTERNATE DAY

REACTIONS (1)
  - PULMONARY EMBOLISM [None]
